FAERS Safety Report 11793522 (Version 1)
Quarter: 2015Q4

REPORT INFORMATION
  Report Type: Spontaneous
  Country: US (occurrence: None)
  Receive Date: 20151201
  Receipt Date: 20151201
  Transmission Date: 20160305
  Serious: Yes (Other)
  Sender: FDA-Public Use
  Company Number: None

PATIENT
  Age: 67 Year
  Sex: Female
  Weight: 90.4 kg

DRUGS (13)
  1. FOLIC ACID. [Concomitant]
     Active Substance: FOLIC ACID
  2. CALCIUM WITH VITAMIN D [Concomitant]
     Active Substance: CALCIUM\VITAMIN D
  3. SINGULAIR [Concomitant]
     Active Substance: MONTELUKAST SODIUM
  4. BUDESONIDE. [Concomitant]
     Active Substance: BUDESONIDE
  5. CIMZIA [Suspect]
     Active Substance: CERTOLIZUMAB PEGOL
     Indication: COLITIS ULCERATIVE
     Dosage: 400 MG EVERY 4 WEEKS SUBCUTANEOUS
     Route: 058
  6. METHOTREXATE [Concomitant]
     Active Substance: METHOTREXATE
  7. ALBUTEROL. [Concomitant]
     Active Substance: ALBUTEROL
  8. HYDROCHLOROTHIAZIDE. [Concomitant]
     Active Substance: HYDROCHLOROTHIAZIDE
  9. PROBIOTIC [Concomitant]
     Active Substance: PROBIOTICS NOS
  10. LOSARTAN. [Concomitant]
     Active Substance: LOSARTAN
  11. CELEBREX [Concomitant]
     Active Substance: CELECOXIB
  12. CLARITIN [Concomitant]
     Active Substance: LORATADINE
  13. PRILOSEC [Concomitant]
     Active Substance: OMEPRAZOLE MAGNESIUM

REACTIONS (4)
  - Acute myocardial infarction [None]
  - Left ventricular end-diastolic pressure increased [None]
  - Ejection fraction decreased [None]
  - Coronary artery disease [None]

NARRATIVE: CASE EVENT DATE: 20151119
